FAERS Safety Report 9820195 (Version 1)
Quarter: 2013Q4

REPORT INFORMATION
  Report Type: Spontaneous
  Country: US (occurrence: None)
  Receive Date: 20131223
  Receipt Date: 20131223
  Transmission Date: 20140711
  Serious: No
  Sender: FDA-Public Use
  Company Number: 221058

PATIENT
  Age: 52 Year
  Sex: Female

DRUGS (2)
  1. PICATO [Suspect]
     Indication: ACTINIC CHEILITIS
     Route: 061
     Dates: start: 20130321, end: 20130323
  2. LISINOPRIL (LISINOPRIL) [Concomitant]

REACTIONS (3)
  - Application site pain [None]
  - Application site vesicles [None]
  - Off label use [None]
